FAERS Safety Report 23261850 (Version 3)
Quarter: 2023Q4

REPORT INFORMATION
  Report Type: Spontaneous
  Country: JP (occurrence: JP)
  Receive Date: 20231205
  Receipt Date: 20231227
  Transmission Date: 20240109
  Serious: Yes (Other)
  Sender: FDA-Public Use
  Company Number: JP-002147023-NVSJ2023JP017210

PATIENT
  Age: 36 Year
  Sex: Female

DRUGS (1)
  1. LETROZOLE [Suspect]
     Active Substance: LETROZOLE
     Indication: Controlled ovarian stimulation
     Dosage: UNK
     Route: 048

REACTIONS (2)
  - Premature delivery [Unknown]
  - Maternal exposure before pregnancy [Unknown]
